FAERS Safety Report 8447923 (Version 6)
Quarter: 2012Q4

REPORT INFORMATION
  Report Type: 
  Country: US (occurrence: US)
  Receive Date: 20120308
  Receipt Date: 20121003
  Transmission Date: 20130627
  Serious: Yes (Hospitalization, Other)
  Sender: FDA-Public Use
  Company Number: US-009507513-1203USA00792

PATIENT

DRUGS (7)
  1. FOSAMAX [Suspect]
     Indication: OSTEOPOROSIS
     Dosage: 10 mg, qd
     Route: 048
     Dates: start: 19990403, end: 20090520
  2. FOSAMAX [Suspect]
     Indication: OSTEOPENIA
     Dosage: 70 mg, UNK
     Route: 048
  3. CALCIUM (UNSPECIFIED) [Concomitant]
     Dosage: to present
     Dates: start: 1999
  4. MK-9278 [Concomitant]
     Dosage: to present
     Route: 048
     Dates: start: 1999
  5. ISOTONIX OPC-3 [Concomitant]
     Dosage: to present
     Dates: start: 1999
  6. EFFEXOR XR [Concomitant]
     Dosage: 37.5 mg, qd
     Route: 048
  7. EFFEXOR XR [Concomitant]
     Indication: ANXIETY

REACTIONS (49)
  - Femur fracture [Unknown]
  - Open reduction of fracture [Unknown]
  - Device failure [Unknown]
  - Fracture nonunion [Unknown]
  - Osteoarthritis [Unknown]
  - Hypertension [Unknown]
  - Hypotension [Unknown]
  - Squamous cell carcinoma [Unknown]
  - Pelvic fracture [Unknown]
  - Low turnover osteopathy [Unknown]
  - Anaemia postoperative [Unknown]
  - Rib fracture [Unknown]
  - Cervical vertebral fracture [Unknown]
  - Anxiety [Unknown]
  - Vomiting projectile [Unknown]
  - Contusion [Unknown]
  - Depression [Unknown]
  - Pernicious anaemia [Not Recovered/Not Resolved]
  - Malocclusion [Unknown]
  - Joint dislocation [Unknown]
  - Meniscus injury [Unknown]
  - Periorbital contusion [Unknown]
  - Insomnia [Unknown]
  - Intervertebral disc protrusion [Unknown]
  - Post procedural constipation [Unknown]
  - Cataract [Unknown]
  - Hyperlipidaemia [Unknown]
  - Cough [Unknown]
  - Thoracic vertebral fracture [Unknown]
  - Spinal column stenosis [Unknown]
  - Spinal osteoarthritis [Unknown]
  - Irritable bowel syndrome [Unknown]
  - Rhinitis seasonal [Unknown]
  - Diverticulitis [Unknown]
  - Leukopenia [Unknown]
  - Foot fracture [Unknown]
  - Diverticulum [Unknown]
  - Lymphadenitis [Unknown]
  - Rectal polyp [Unknown]
  - Herpes zoster [Recovering/Resolving]
  - Post herpetic neuralgia [Unknown]
  - Compression fracture [Unknown]
  - Muscle strain [Unknown]
  - Spinal osteoarthritis [Unknown]
  - Intervertebral disc disorder [Unknown]
  - Osteoarthritis [Unknown]
  - Drug ineffective [Unknown]
  - Constipation [Unknown]
  - Rash [Unknown]
